FAERS Safety Report 6165754-5 (Version None)
Quarter: 2009Q2

REPORT INFORMATION
  Report Type: 
  Country: None (occurrence: None)
  Receive Date: 20090422
  Receipt Date: 20090414
  Transmission Date: 20091009
  Serious: Yes (Death)
  Sender: FDA-Public Use
  Company Number: 200911269BNE

PATIENT
  Sex: Male

DRUGS (3)
  1. FLUDARA NOS [Suspect]
     Indication: DRUG USE FOR UNKNOWN INDICATION
  2. ENOXAPARIN SODIUM [Concomitant]
  3. BLOOD (NOS) [Concomitant]

REACTIONS (1)
  - DEATH [None]
